FAERS Safety Report 5683845-X (Version None)
Quarter: 2008Q1

REPORT INFORMATION
  Report Type: 
  Country: None (occurrence: None)
  Receive Date: 20080326
  Receipt Date: 20070820
  Transmission Date: 20080703
  Serious: Yes (Other)
  Sender: FDA-Public Use
  Company Number: 6037056

PATIENT
  Age: 68 Year
  Sex: Female

DRUGS (4)
  1. METFORMIN HCL [Suspect]
     Indication: TYPE 1 DIABETES MELLITUS
     Dosage: 2550 MG ORAL
     Route: 048
     Dates: start: 20070723
  2. AMARYL [Suspect]
     Indication: TYPE 1 DIABETES MELLITUS
     Dosage: 12 MG ORAL
     Route: 048
     Dates: start: 20070723
  3. SIMVASTATIN [Concomitant]
  4. LOSARTAN POTASSIUM [Concomitant]

REACTIONS (4)
  - ASTHENIA [None]
  - HYPOGLYCAEMIA [None]
  - LOSS OF CONSCIOUSNESS [None]
  - ORAL INTAKE REDUCED [None]
